FAERS Safety Report 25304923 (Version 1)
Quarter: 2025Q2

REPORT INFORMATION
  Report Type: Spontaneous
  Country: US (occurrence: US)
  Receive Date: 20250513
  Receipt Date: 20250513
  Transmission Date: 20250716
  Serious: No
  Sender: INCYTE
  Company Number: US-EVENT-002489

PATIENT
  Age: 35 Year

DRUGS (1)
  1. OPZELURA [Suspect]
     Active Substance: RUXOLITINIB PHOSPHATE
     Indication: Vitiligo
     Dosage: 1.5 PERCENT, BID (APPLY ON VITILIGO PATCHES UNTIL PIGMENT RETURNS)
     Route: 065

REACTIONS (1)
  - Pruritus [Not Recovered/Not Resolved]
